FAERS Safety Report 7490305-2 (Version None)
Quarter: 2011Q2

REPORT INFORMATION
  Report Type: 
  Country: None (occurrence: None)
  Receive Date: 20110519
  Receipt Date: 20110119
  Transmission Date: 20111010
  Serious: No
  Sender: FDA-Public Use
  Company Number: US-BRISTOL-MYERS SQUIBB COMPANY-15498314

PATIENT
  Age: 6 Decade
  Sex: Male

DRUGS (1)
  1. BARACLUDE [Suspect]
     Dates: start: 20110101

REACTIONS (1)
  - DIARRHOEA [None]
